FAERS Safety Report 4807689-3 (Version None)
Quarter: 2005Q4

REPORT INFORMATION
  Report Type: 
  Country: None (occurrence: None)
  Receive Date: 20051024
  Receipt Date: 20050927
  Transmission Date: 20060501
  Serious: Yes (Hospitalization)
  Sender: FDA-Public Use
  Company Number: PHNU2005DE03302

PATIENT
  Sex: Male
  Weight: 75 kg

DRUGS (7)
  1. SANDIMMUNE [Suspect]
     Indication: CORNEAL TRANSPLANT
     Dosage: 125 MG, BID
     Route: 065
     Dates: start: 20040101, end: 20050101
  2. SANDIMMUNE [Suspect]
     Dosage: 100 MG, BID
     Route: 065
     Dates: start: 20050101
  3. ASPIRIN [Concomitant]
  4. DELIX [Concomitant]
  5. UNIMAX ^ASTRAZENECA^ [Concomitant]
  6. MOXONIDINE [Concomitant]
  7. NEBILET [Concomitant]

REACTIONS (4)
  - AMYOTROPHIC LATERAL SCLEROSIS [None]
  - GAIT DISTURBANCE [None]
  - HYPERTENSION [None]
  - OVERDOSE [None]
